FAERS Safety Report 22087515 (Version 1)
Quarter: 2023Q1

REPORT INFORMATION
  Report Type: Spontaneous
  Country: IN (occurrence: IN)
  Receive Date: 20230313
  Receipt Date: 20230313
  Transmission Date: 20230417
  Serious: Yes (Other)
  Sender: FDA-Public Use
  Company Number: IN-CADILA HEALTHCARE LIMITED-IN-ZYDUS-089027

PATIENT

DRUGS (6)
  1. DOXORUBICIN [Suspect]
     Active Substance: DOXORUBICIN
     Indication: Invasive breast carcinoma
     Dosage: 60 MILLIGRAM/SQ. METER
     Route: 065
  2. CYCLOPHOSPHAMIDE [Suspect]
     Active Substance: CYCLOPHOSPHAMIDE
     Indication: Invasive breast carcinoma
     Dosage: 600 MILLIGRAM/SQ. METER
     Route: 065
  3. LETROZOLE [Suspect]
     Active Substance: LETROZOLE
     Indication: Invasive breast carcinoma
     Dosage: 2.5 MILLIGRAM, QD
     Route: 065
  4. DOCETAXEL [Suspect]
     Active Substance: DOCETAXEL
     Indication: Invasive breast carcinoma
     Dosage: UNK
     Route: 065
  5. DEXAMETHASONE [Concomitant]
     Active Substance: DEXAMETHASONE
     Indication: Arthralgia
     Dosage: 0.5 MILLIGRAM, QD
     Route: 065
  6. ACETAMINOPHEN [Concomitant]
     Active Substance: ACETAMINOPHEN
     Indication: Pyrexia
     Dosage: UNK
     Route: 048

REACTIONS (2)
  - Inflammation [Recovered/Resolved]
  - Drug ineffective [Unknown]
